FAERS Safety Report 6975576-0 (Version None)
Quarter: 2010Q3

REPORT INFORMATION
  Report Type: 
  Country: None (occurrence: None)
  Receive Date: 20100910
  Receipt Date: 20090323
  Transmission Date: 20110219
  Serious: No
  Sender: FDA-Public Use
  Company Number: US-WYE-H08684509

PATIENT
  Sex: Female
  Weight: 59.02 kg

DRUGS (6)
  1. PRISTIQ [Suspect]
     Indication: DEPRESSION
     Route: 048
     Dates: start: 20090301
  2. DEXEDRINE [Concomitant]
  3. SIMVASTATIN [Concomitant]
  4. VITAMINS [Concomitant]
  5. PREMPRO [Concomitant]
  6. WELLBUTRIN [Concomitant]

REACTIONS (1)
  - NAUSEA [None]
